FAERS Safety Report 8599489-6 (Version None)
Quarter: 2012Q3

REPORT INFORMATION
  Report Type: 
  Country: None (occurrence: None)
  Receive Date: 20120816
  Receipt Date: 20120510
  Transmission Date: 20120928
  Serious: No
  Sender: FDA-Public Use
  Company Number: US-ALLERGAN-1206672US

PATIENT
  Age: 42 Year
  Sex: Female

DRUGS (2)
  1. LASTACAFT [Suspect]
     Indication: HYPERSENSITIVITY
     Dosage: UNK
     Route: 047
  2. ALLERGY MEDICATION [Concomitant]
     Indication: SEASONAL ALLERGY
     Route: 030

REACTIONS (7)
  - EYE INFECTION [None]
  - EYE ALLERGY [None]
  - LACRIMATION INCREASED [None]
  - EYE IRRITATION [None]
  - EYE DISCHARGE [None]
  - CONJUNCTIVITIS INFECTIVE [None]
  - OCULAR HYPERAEMIA [None]
